FAERS Safety Report 4469526-9 (Version None)
Quarter: 2004Q4

REPORT INFORMATION
  Report Type: 
  Country: None (occurrence: None)
  Receive Date: 20041005
  Receipt Date: 20040920
  Transmission Date: 20050328
  Serious: Yes (Other)
  Sender: FDA-Public Use
  Company Number: 2004235101PL

PATIENT
  Sex: 0

DRUGS (1)
  1. DELTASONE [Suspect]
     Indication: MYASTHENIA GRAVIS

REACTIONS (1)
  - RESPIRATORY FAILURE [None]
